FAERS Safety Report 5741865-0 (Version None)
Quarter: 2008Q2

REPORT INFORMATION
  Report Type: 
  Country: None (occurrence: None)
  Receive Date: 20080519
  Receipt Date: 20080506
  Transmission Date: 20081010
  Serious: Yes (Other)
  Sender: FDA-Public Use
  Company Number: US-JNJFOC-20080501032

PATIENT
  Sex: Female
  Weight: 136.08 kg

DRUGS (10)
  1. IBUPROFEN [Suspect]
     Indication: PAIN
  2. PROTONIX [Concomitant]
     Indication: GASTROOESOPHAGEAL REFLUX DISEASE
  3. OSCAL [Concomitant]
  4. TEGRETOL [Concomitant]
     Indication: CONVULSION
  5. PHENOBARBITAL TAB [Concomitant]
     Indication: CONVULSION
  6. LOPRESSOR [Concomitant]
     Indication: BLOOD PRESSURE ABNORMAL
  7. ASPIRIN [Concomitant]
  8. SYNTHROID [Concomitant]
     Indication: THYROID DISORDER
  9. VITAMIN CAP [Concomitant]
  10. COLACE [Concomitant]
     Indication: CONSTIPATION

REACTIONS (5)
  - ARTHRALGIA [None]
  - BONE PAIN [None]
  - PAIN [None]
  - PAIN IN EXTREMITY [None]
  - PAIN OF SKIN [None]
